FAERS Safety Report 6410151-8 (Version None)
Quarter: 2009Q4

REPORT INFORMATION
  Report Type: 
  Country: None (occurrence: None)
  Receive Date: 20091022
  Receipt Date: 20091007
  Transmission Date: 20100525
  Serious: Yes (Other)
  Sender: FDA-Public Use
  Company Number: FR-ROCHE-661378

PATIENT
  Sex: Female
  Weight: 66 kg

DRUGS (7)
  1. MYCOPHENOLATE MOFETIL [Suspect]
     Indication: LUPUS NEPHRITIS
     Route: 065
     Dates: start: 20090216
  2. OCRELIZUMAB [Suspect]
     Indication: LUPUS NEPHRITIS
     Dosage: LAST DOSE PRIOR TO SAE: 08 OCTOBER 2008.
     Route: 042
     Dates: start: 20080922, end: 20090826
  3. PREDNISONE [Suspect]
     Indication: LUPUS NEPHRITIS
     Route: 065
     Dates: start: 20090309
  4. ATORVASTATIN CALCIUM [Concomitant]
     Dates: start: 20081023
  5. RAMIPRIL [Concomitant]
     Dates: start: 20090122
  6. SULFATE FERREUX [Concomitant]
     Dates: start: 20090227, end: 20090725
  7. CHLORMADINONE ACETATE TAB [Concomitant]
     Dates: start: 20060101

REACTIONS (1)
  - CERVIX CARCINOMA [None]
